FAERS Safety Report 24257055 (Version 1)
Quarter: 2024Q3

REPORT INFORMATION
  Report Type: Spontaneous
  Country: US (occurrence: None)
  Receive Date: 20240828
  Receipt Date: 20240828
  Transmission Date: 20241016
  Serious: Yes (Other)
  Sender: ASTRAZENECA
  Company Number: 2024A190437

PATIENT
  Age: 64 Year
  Sex: Male

DRUGS (1)
  1. DAPAGLIFLOZIN [Suspect]
     Active Substance: DAPAGLIFLOZIN
     Route: 048
     Dates: start: 20240129

REACTIONS (5)
  - Cardiac disorder [Unknown]
  - Anxiety [Unknown]
  - Mania [Unknown]
  - Psychomotor hyperactivity [Unknown]
  - Stress [Unknown]

NARRATIVE: CASE EVENT DATE: 20240101
